FAERS Safety Report 7601426-5 (Version None)
Quarter: 2011Q2

REPORT INFORMATION
  Report Type: 
  Country: None (occurrence: None)
  Receive Date: 20110629
  Receipt Date: 20110615
  Transmission Date: 20111010
  Serious: Yes (Life-Threatening, Hospitalization, Other)
  Sender: FDA-Public Use
  Company Number: 2011MA007213

PATIENT
  Age: 46 Year
  Sex: Female

DRUGS (7)
  1. METAXALONE [Concomitant]
  2. ZOLPIDEM [Concomitant]
  3. CITALOPRAM HYDROBROMIDE [Suspect]
     Dosage: 10 MG, QD,
  4. INSULIN LISPRO [Concomitant]
  5. INSULIN GLARGINE [Concomitant]
  6. TRIMETHOPRIM + SULFAMETHOXAZOLE [Concomitant]
  7. OLANZAPINE [Concomitant]

REACTIONS (11)
  - THROMBOCYTOPENIA [None]
  - HYPERREFLEXIA [None]
  - DRUG LEVEL INCREASED [None]
  - DELIRIUM [None]
  - CLONUS [None]
  - HYPERTENSION [None]
  - PYREXIA [None]
  - TREMOR [None]
  - TOXICITY TO VARIOUS AGENTS [None]
  - TACHYCARDIA [None]
  - MUSCLE RIGIDITY [None]
